FAERS Safety Report 5721827-X (Version None)
Quarter: 2008Q2

REPORT INFORMATION
  Report Type: 
  Country: None (occurrence: None)
  Receive Date: 20080429
  Receipt Date: 20070530
  Transmission Date: 20081010
  Serious: No
  Sender: FDA-Public Use
  Company Number: US-ASTRAZENECA-2007UW13193

PATIENT
  Age: 81 Year
  Sex: Male
  Weight: 79.4 kg

DRUGS (7)
  1. NEXIUM [Suspect]
     Indication: NAUSEA
     Route: 048
  2. OXYBUTIN [Concomitant]
  3. LOTREL [Concomitant]
  4. HYDROCHLORODOT [Concomitant]
  5. ZYRTEC [Concomitant]
  6. LIPITOR [Concomitant]
  7. ATENOL [Concomitant]

REACTIONS (3)
  - COUGH [None]
  - HYPERSENSITIVITY [None]
  - SNEEZING [None]
